FAERS Safety Report 5712685-8 (Version None)
Quarter: 2008Q2

REPORT INFORMATION
  Report Type: 
  Country: None (occurrence: None)
  Receive Date: 20080418
  Receipt Date: 20080403
  Transmission Date: 20081010
  Serious: Yes (Hospitalization)
  Sender: FDA-Public Use
  Company Number: S08-FRA-01417-01

PATIENT
  Age: 43 Year
  Sex: Male

DRUGS (2)
  1. ESCITALOPRAM [Suspect]
     Dosage: 1 QD PO
     Route: 048
     Dates: start: 20070701, end: 20070710
  2. MEPRONIZINE (MEPROBAMATE) [Suspect]
     Dosage: 1 BID PO
     Route: 048
     Dates: start: 20070701, end: 20070710

REACTIONS (1)
  - FIXED ERUPTION [None]
